FAERS Safety Report 9619646 (Version 2)
Quarter: 2013Q4

REPORT INFORMATION
  Report Type: Spontaneous
  Country: AU (occurrence: AU)
  Receive Date: 20131014
  Receipt Date: 20131017
  Transmission Date: 20140711
  Serious: Yes (Death)
  Sender: FDA-Public Use
  Company Number: PHHY2013AU114889

PATIENT
  Age: 37 Year
  Sex: Male
  Weight: 70 kg

DRUGS (2)
  1. RITALIN [Suspect]
     Dosage: 5 MG, DAILY
     Dates: start: 20100622
  2. LEXAPRO [Concomitant]
     Dosage: UNK UKN, UNK

REACTIONS (1)
  - Completed suicide [Fatal]
